FAERS Safety Report 7569805-2 (Version None)
Quarter: 2011Q2

REPORT INFORMATION
  Report Type: 
  Country: None (occurrence: None)
  Receive Date: 20110620
  Receipt Date: 20110610
  Transmission Date: 20111010
  Serious: Yes (Hospitalization)
  Sender: FDA-Public Use
  Company Number: JPI-P-015409

PATIENT
  Age: 22 Year
  Sex: Male
  Weight: 113.3993 kg

DRUGS (5)
  1. ALPRAZOLAM [Concomitant]
  2. AMPHETAMINE, DEXTROAMPHETAMINE MIXED SALTS [Concomitant]
  3. OXYCODONE HCL [Concomitant]
  4. XYREM [Suspect]
     Indication: HYPERSOMNIA
     Dosage: ORAL; 9 GM (4.5 GM, 2 IN 1 D), ORAL
     Route: 048
     Dates: start: 20101201
  5. XYREM [Suspect]
     Indication: HYPERSOMNIA
     Dosage: ORAL; 9 GM (4.5 GM, 2 IN 1 D), ORAL
     Route: 048
     Dates: end: 20110422

REACTIONS (4)
  - PANIC ATTACK [None]
  - STAPHYLOCOCCAL INFECTION [None]
  - MAJOR DEPRESSION [None]
  - MIGRAINE [None]
